FAERS Safety Report 8264220-0 (Version None)
Quarter: 2012Q2

REPORT INFORMATION
  Report Type: 
  Country: None (occurrence: None)
  Receive Date: 20120406
  Receipt Date: 20120326
  Transmission Date: 20120825
  Serious: Yes (Hospitalization)
  Sender: FDA-Public Use
  Company Number: US-JNJFOC-20120313652

PATIENT
  Sex: Male
  Weight: 120.66 kg

DRUGS (2)
  1. REMICADE [Suspect]
     Indication: COLITIS ULCERATIVE
     Route: 042
     Dates: start: 20111201, end: 20120101
  2. CORTICOSTEROID UNSPECIFIED [Suspect]
     Indication: COLITIS ULCERATIVE
     Route: 065
     Dates: start: 20120101

REACTIONS (9)
  - WEIGHT DECREASED [None]
  - NAUSEA [None]
  - BLOOD GLUCOSE INCREASED [None]
  - EATING DISORDER [None]
  - RECTAL HAEMORRHAGE [None]
  - DYSGEUSIA [None]
  - FAECAL INCONTINENCE [None]
  - GASTROINTESTINAL HAEMORRHAGE [None]
  - COLITIS ULCERATIVE [None]
